FAERS Safety Report 25776928 (Version 1)
Quarter: 2025Q3

REPORT INFORMATION
  Report Type: Spontaneous
  Country: US (occurrence: US)
  Receive Date: 20250909
  Receipt Date: 20250909
  Transmission Date: 20251021
  Serious: No
  Sender: DOMPE FARMACEUTICI
  Company Number: US-FARMAPROD-202409-3274

PATIENT
  Sex: Female

DRUGS (20)
  1. OXERVATE [Suspect]
     Active Substance: CENEGERMIN-BKBJ
     Indication: Neurotrophic keratopathy
     Route: 047
     Dates: start: 20240910
  2. SYNTHROID [Concomitant]
     Active Substance: LEVOTHYROXINE SODIUM
  3. UBRELVY [Concomitant]
     Active Substance: UBROGEPANT
  4. HYDROCHLOROTHIAZIDE\TRIAMTERENE [Concomitant]
     Active Substance: HYDROCHLOROTHIAZIDE\TRIAMTERENE
  5. SPIRONOLACTONE [Concomitant]
     Active Substance: SPIRONOLACTONE
  6. MOTEGRITY [Concomitant]
     Active Substance: PRUCALOPRIDE SUCCINATE
  7. PENTOXIFYLLINE [Concomitant]
     Active Substance: PENTOXIFYLLINE
  8. NIFEDIPINE [Concomitant]
     Active Substance: NIFEDIPINE
  9. LINZESS [Concomitant]
     Active Substance: LINACLOTIDE
  10. COLCRYS [Concomitant]
     Active Substance: COLCHICINE
  11. XIIDRA [Concomitant]
     Active Substance: LIFITEGRAST
  12. SYSTANE ULTRA [Concomitant]
     Active Substance: POLYETHYLENE GLYCOL 400\PROPYLENE GLYCOL
  13. FLAXSEED [Concomitant]
     Active Substance: FLAX SEED
  14. FISH OIL [Concomitant]
     Active Substance: FISH OIL
  15. VITAMIN D3 [Concomitant]
     Active Substance: CHOLECALCIFEROL
  16. MAGNESIUM [Concomitant]
     Active Substance: MAGNESIUM
  17. CYANOCOBALAMIN [Concomitant]
     Active Substance: CYANOCOBALAMIN
  18. VITAMIN B12 [Concomitant]
     Active Substance: CYANOCOBALAMIN
  19. PYRIDOXINE [Concomitant]
     Active Substance: PYRIDOXINE
  20. MULTIVITAMIN WOMEN 50 PLUS [Concomitant]

REACTIONS (2)
  - Eye pain [Unknown]
  - Eye swelling [Unknown]
